FAERS Safety Report 18104300 (Version 4)
Quarter: 2020Q4

REPORT INFORMATION
  Report Type: Report from Study
  Country: AR (occurrence: AR)
  Receive Date: 20200803
  Receipt Date: 20201218
  Transmission Date: 20210113
  Serious: Yes (Other)
  Sender: FDA-Public Use
  Company Number: NVSC2020AR194725

PATIENT
  Age: 69 Year
  Sex: Female

DRUGS (3)
  1. KISQALI [Suspect]
     Active Substance: RIBOCICLIB
     Dosage: 600 MG, QD
     Route: 048
  2. LETROZOLE. [Suspect]
     Active Substance: LETROZOLE
     Indication: BREAST CANCER
     Dosage: 2.5 MG, QD
     Route: 048
     Dates: start: 201902
  3. KISQALI [Suspect]
     Active Substance: RIBOCICLIB
     Indication: BREAST CANCER METASTATIC
     Dosage: 600 MG, QD
     Route: 048
     Dates: start: 20190122, end: 20200306

REACTIONS (10)
  - Blister [Recovered/Resolved]
  - Haemorrhage [Unknown]
  - Memory impairment [Unknown]
  - Headache [Unknown]
  - Herpes zoster [Recovered/Resolved]
  - Platelet count decreased [Unknown]
  - Discomfort [Recovered/Resolved]
  - Depression [Unknown]
  - Pain [Recovered/Resolved]
  - Infection [Not Recovered/Not Resolved]

NARRATIVE: CASE EVENT DATE: 202006
